FAERS Safety Report 6936146-3 (Version None)
Quarter: 2010Q3

REPORT INFORMATION
  Report Type: 
  Country: None (occurrence: None)
  Receive Date: 20100823
  Receipt Date: 20100817
  Transmission Date: 20110219
  Serious: Yes (Other)
  Sender: FDA-Public Use
  Company Number: IN-GENZYME-THYM-1001783

PATIENT
  Age: 56 Year
  Sex: Male
  Weight: 74 kg

DRUGS (1)
  1. THYMOGLOBULIN [Suspect]
     Indication: TRANSPLANT REJECTION
     Dosage: 1.5 MG/KG, QD
     Route: 042
     Dates: start: 20100726

REACTIONS (2)
  - ANAPHYLACTIC REACTION [None]
  - HYPERHIDROSIS [None]
